FAERS Safety Report 6244799-0 (Version None)
Quarter: 2009Q2

REPORT INFORMATION
  Report Type: 
  Country: None (occurrence: None)
  Receive Date: 20090625
  Receipt Date: 20090623
  Transmission Date: 20091009
  Serious: Yes (Hospitalization, Other)
  Sender: FDA-Public Use
  Company Number: US-ROXANE LABORATORIES, INC.-2009-RO-00612RO

PATIENT
  Age: 42 Year
  Sex: Male

DRUGS (4)
  1. LITHIUM CARBONATE [Suspect]
     Indication: SCHIZOAFFECTIVE DISORDER
     Dosage: 800 MG
  2. LITHIUM CARBONATE [Suspect]
  3. FLUNITRAZEPAM [Suspect]
     Indication: SCHIZOAFFECTIVE DISORDER
     Dosage: 1 MG
  4. DANTROLENE SODIUM [Concomitant]
     Indication: NEUROLEPTIC MALIGNANT SYNDROME

REACTIONS (4)
  - LOCKED-IN SYNDROME [None]
  - NEUROLEPTIC MALIGNANT SYNDROME [None]
  - THERAPEUTIC AGENT TOXICITY [None]
  - WHITE BLOOD CELL COUNT INCREASED [None]
